FAERS Safety Report 8534785-X (Version None)
Quarter: 2012Q3

REPORT INFORMATION
  Report Type: 
  Country: None (occurrence: None)
  Receive Date: 20120724
  Receipt Date: 20120712
  Transmission Date: 20120928
  Serious: Yes (Hospitalization, Other)
  Sender: FDA-Public Use
  Company Number: US-BAXTER-2012BAX011146

PATIENT
  Sex: Male
  Weight: 83.18 kg

DRUGS (10)
  1. MULTI-VITAMIN [Concomitant]
     Route: 048
  2. BROMFED [Concomitant]
     Indication: COUGH
     Route: 048
  3. THEOPHYLLINE [Concomitant]
     Route: 048
  4. KLOR-CON [Concomitant]
  5. PRIVIGEN [Suspect]
     Indication: IDIOPATHIC THROMBOCYTOPENIC PURPURA
     Route: 042
     Dates: start: 20110801
  6. PREDNISONE [Concomitant]
     Indication: IDIOPATHIC THROMBOCYTOPENIC PURPURA
     Route: 048
  7. PRIVIGEN [Suspect]
     Route: 042
     Dates: start: 20120101
  8. ARALAST NP [Suspect]
     Indication: ALPHA-1 ANTI-TRYPSIN DEFICIENCY
     Route: 042
     Dates: start: 20100501, end: 20120220
  9. PREDNISONE [Concomitant]
     Indication: PNEUMONIA
  10. XOPENEX [Concomitant]

REACTIONS (7)
  - MALAISE [None]
  - PNEUMONIA [None]
  - IDIOPATHIC THROMBOCYTOPENIC PURPURA [None]
  - WEIGHT DECREASED [None]
  - ASTHENIA [None]
  - SYNCOPE [None]
  - RASH [None]
